FAERS Safety Report 8815819 (Version 1)
Quarter: 2012Q4

REPORT INFORMATION
  Report Type: 
  Country: FR (occurrence: FR)
  Receive Date: 20120928
  Receipt Date: 20120928
  Transmission Date: 20130627
  Serious: Yes (Hospitalization)
  Sender: FDA-Public Use
  Company Number: FR-VERTEX PHARMACEUTICAL INC.-2012-021848

PATIENT
  Age: 55 Year
  Sex: Female

DRUGS (3)
  1. INCIVO [Suspect]
     Indication: HEPATITIS C
     Dosage: Dosage Form: Tablet
     Route: 048
     Dates: start: 20120402, end: 20120618
  2. COPEGUS [Suspect]
     Indication: HEPATITIS C
     Dosage: Dosage Form: Tablet
     Route: 048
     Dates: start: 20120402
  3. PEGASYS [Suspect]
     Indication: HEPATITIS C
     Dosage: Dosage Form: Injection: once a week
     Route: 058
     Dates: start: 20120402

REACTIONS (1)
  - Porphyria non-acute [Not Recovered/Not Resolved]
